FAERS Safety Report 12832600 (Version 2)
Quarter: 2018Q2

REPORT INFORMATION
  Report Type: Spontaneous
  Country: US (occurrence: US)
  Receive Date: 20161010
  Receipt Date: 20180518
  Transmission Date: 20180711
  Serious: No
  Sender: FDA-Public Use
  Company Number: US-JAZZ-2016-US-013384

PATIENT
  Sex: Female

DRUGS (49)
  1. NORVASC [Concomitant]
     Active Substance: AMLODIPINE BESYLATE
  2. UROXATRAL [Concomitant]
     Active Substance: ALFUZOSIN HYDROCHLORIDE
  3. VALIUM [Concomitant]
     Active Substance: DIAZEPAM
  4. WELLBUTRIN [Concomitant]
     Active Substance: BUPROPION HYDROCHLORIDE
  5. ZYRTEC [Concomitant]
     Active Substance: CETIRIZINE HYDROCHLORIDE
  6. XYREM [Suspect]
     Active Substance: SODIUM OXYBATE
     Dosage: DOSE ADJUSTMENTS
     Route: 048
     Dates: start: 201111, end: 201111
  7. KLONOPIN [Concomitant]
     Active Substance: CLONAZEPAM
  8. LORAZEPAM. [Concomitant]
     Active Substance: LORAZEPAM
  9. NEXIUM [Concomitant]
     Active Substance: ESOMEPRAZOLE MAGNESIUM
  10. ADVAIR HFA [Concomitant]
     Active Substance: FLUTICASONE PROPIONATE\SALMETEROL XINAFOATE
  11. TUMS EX [Concomitant]
     Active Substance: CALCIUM CARBONATE
  12. ZOFRAN [Concomitant]
     Active Substance: ONDANSETRON HYDROCHLORIDE
  13. KETOCONAZOLE. [Concomitant]
     Active Substance: KETOCONAZOLE
  14. VITAMIN D2 [Concomitant]
     Active Substance: ERGOCALCIFEROL
  15. XYREM [Suspect]
     Active Substance: SODIUM OXYBATE
     Dosage: 2.25 G, BID
     Route: 048
     Dates: start: 201110, end: 201111
  16. FLUOXETINE [Concomitant]
     Active Substance: FLUOXETINE HYDROCHLORIDE
  17. ADDERALL XR [Concomitant]
     Active Substance: AMPHETAMINE ASPARTATE\AMPHETAMINE SULFATE\DEXTROAMPHETAMINE SACCHARATE\DEXTROAMPHETAMINE SULFATE
  18. ESTROGEN/METHYLTES [Concomitant]
     Active Substance: ESTROGENS\METHYLTESTOSTERONE
  19. POTASSIUM CITRATE. [Concomitant]
     Active Substance: POTASSIUM CITRATE
  20. POTASSIUM CL [Concomitant]
     Active Substance: POTASSIUM CHLORIDE
  21. XYREM [Suspect]
     Active Substance: SODIUM OXYBATE
     Dosage: 4.5 G, BID
     Route: 048
     Dates: start: 201111
  22. AMBIEN [Concomitant]
     Active Substance: ZOLPIDEM TARTRATE
  23. CRESTOR [Concomitant]
     Active Substance: ROSUVASTATIN CALCIUM
  24. DYMISTA [Concomitant]
     Active Substance: AZELASTINE HYDROCHLORIDE\FLUTICASONE PROPIONATE
  25. MIRALAX [Concomitant]
     Active Substance: POLYETHYLENE GLYCOL 3350
  26. SUMATRIPTAN SUCCINATE. [Concomitant]
     Active Substance: SUMATRIPTAN SUCCINATE
  27. TURMERIC [Concomitant]
     Active Substance: HERBALS\TURMERIC
  28. CYCLOBENZAPRINE. [Concomitant]
     Active Substance: CYCLOBENZAPRINE
  29. VITAMIN D3 [Concomitant]
     Active Substance: CHOLECALCIFEROL
  30. DIAZEPAM. [Concomitant]
     Active Substance: DIAZEPAM
  31. DIGOXIN. [Concomitant]
     Active Substance: DIGOXIN
  32. ADDERALL [Concomitant]
     Active Substance: AMPHETAMINE ASPARTATE\AMPHETAMINE SULFATE\DEXTROAMPHETAMINE SACCHARATE\DEXTROAMPHETAMINE SULFATE
  33. ALLOPURINOL. [Concomitant]
     Active Substance: ALLOPURINOL
  34. PROVENTIL HFA [Concomitant]
     Active Substance: ALBUTEROL SULFATE
  35. DEPAKOTE [Concomitant]
     Active Substance: DIVALPROEX SODIUM
  36. CLONAZEPAM. [Concomitant]
     Active Substance: CLONAZEPAM
  37. XYREM [Suspect]
     Active Substance: SODIUM OXYBATE
     Dosage: DOSE ADJUSTMENTS
     Dates: start: 201006, end: 201007
  38. ARMOUR THYROID [Concomitant]
     Active Substance: THYROID, PORCINE
  39. PAROXETINE HCL [Concomitant]
     Active Substance: PAROXETINE HYDROCHLORIDE
  40. VALSARTAN AND HYDROCHLOROTHIAZIDE [Concomitant]
     Active Substance: HYDROCHLOROTHIAZIDE\VALSARTAN
  41. FLONASE ALLERGY RELIEF [Concomitant]
     Active Substance: FLUTICASONE PROPIONATE
  42. MAGNESIUM OXIDE. [Concomitant]
     Active Substance: MAGNESIUM OXIDE
  43. NEURONTIN [Concomitant]
     Active Substance: GABAPENTIN
  44. XYREM [Suspect]
     Active Substance: SODIUM OXYBATE
     Indication: NARCOLEPSY
     Dosage: 2.25 G, BID
     Route: 048
     Dates: start: 201006, end: 201006
  45. FLEXERIL [Concomitant]
     Active Substance: CYCLOBENZAPRINE HYDROCHLORIDE
  46. LASIX [Concomitant]
     Active Substance: FUROSEMIDE
  47. LIDODERM [Concomitant]
     Active Substance: LIDOCAINE
  48. XYREM [Suspect]
     Active Substance: SODIUM OXYBATE
     Dosage: 4.5 G, BID
     Route: 048
     Dates: start: 201007, end: 2011
  49. GABAPENTIN. [Concomitant]
     Active Substance: GABAPENTIN
     Dosage: UNK
     Dates: start: 20151111, end: 20160331

REACTIONS (4)
  - Condition aggravated [Recovering/Resolving]
  - Unevaluable event [Unknown]
  - Asthma [Recovering/Resolving]
  - Pain [Recovering/Resolving]
